FAERS Safety Report 25363298 (Version 1)
Quarter: 2025Q2

REPORT INFORMATION
  Report Type: Spontaneous
  Country: US (occurrence: US)
  Receive Date: 20250527
  Receipt Date: 20250527
  Transmission Date: 20250716
  Serious: Yes (Hospitalization)
  Sender: INTRA-CELLULAR THERAPIES
  Company Number: US-INTRA-CELLULAR THERAPIES, INC.-2025ICT00822

PATIENT
  Age: 49 Year
  Sex: Female

DRUGS (2)
  1. CAPLYTA [Suspect]
     Active Substance: LUMATEPERONE
     Dates: start: 202504
  2. ATENOLOL [Suspect]
     Active Substance: ATENOLOL
     Dosage: 12.5 MG, 1X/DAY
     Dates: start: 2025, end: 20250509

REACTIONS (2)
  - Atrial flutter [Unknown]
  - Drug interaction [Recovered/Resolved]

NARRATIVE: CASE EVENT DATE: 20250401
